FAERS Safety Report 8942488 (Version 1)
Quarter: 2012Q4

REPORT INFORMATION
  Report Type: 
  Country: IR (occurrence: IR)
  Receive Date: 20121204
  Receipt Date: 20121204
  Transmission Date: 20130627
  Serious: Yes (Other)
  Sender: FDA-Public Use
  Company Number: IR-ROXANE LABORATORIES, INC.-2012-RO-02464RO

PATIENT
  Age: 52 Year
  Sex: Female

DRUGS (1)
  1. CYCLOPHOSPHAMIDE TABLETS USP [Suspect]
     Indication: NON-HODGKIN^S LYMPHOMA

REACTIONS (1)
  - Toothache [Unknown]
